FAERS Safety Report 9294054 (Version 1)
Quarter: 2013Q1

REPORT INFORMATION
  Report Type: Spontaneous
  Country: US (occurrence: None)
  Receive Date: 20121227
  Receipt Date: 20121227
  Transmission Date: 20140127
  Serious: No
  Sender: FDA-Public Use
  Company Number: PHEH2011US012310

PATIENT
  Age: 6 Year
  Sex: Female

DRUGS (2)
  1. EXJADE [Suspect]
     Indication: SICKLE CELL ANAEMIA
     Route: 048
     Dates: start: 20110322
  2. VITAMIN D3 (COLECALCIFEROL) [Concomitant]

REACTIONS (1)
  - Sickle cell anaemia with crisis [None]
